FAERS Safety Report 10156575 (Version 1)
Quarter: 2014Q2

REPORT INFORMATION
  Report Type: Spontaneous
  Country: GB (occurrence: GB)
  Receive Date: 20140507
  Receipt Date: 20140507
  Transmission Date: 20141212
  Serious: Yes (Death, Other)
  Sender: FDA-Public Use
  Company Number: GB-ROCHE-1394602

PATIENT
  Age: 39 Year
  Sex: 0

DRUGS (3)
  1. CAPECITABINE [Suspect]
     Indication: BREAST CANCER METASTATIC
     Route: 065
     Dates: end: 20050329
  2. CAPECITABINE [Suspect]
     Route: 065
     Dates: end: 20050329
  3. NAVELBINE [Suspect]
     Indication: BREAST CANCER METASTATIC
     Route: 042
     Dates: end: 20050329

REACTIONS (4)
  - Gastrointestinal toxicity [Unknown]
  - Haematotoxicity [Unknown]
  - Malignant neoplasm progression [Unknown]
  - Death [Fatal]
